FAERS Safety Report 20340703 (Version 6)
Quarter: 2022Q3

REPORT INFORMATION
  Report Type: Spontaneous
  Country: IN (occurrence: IN)
  Receive Date: 20220117
  Receipt Date: 20220907
  Transmission Date: 20221027
  Serious: Yes (Hospitalization, Other)
  Sender: FDA-Public Use
  Company Number: IN-PFIZER INC-202101260322

PATIENT
  Age: 62 Year
  Sex: Female
  Weight: 77.2 kg

DRUGS (9)
  1. PALBOCICLIB [Suspect]
     Active Substance: PALBOCICLIB
     Dosage: 125 MG, 1X/DAY
     Route: 048
     Dates: start: 20210821, end: 202110
  2. PALBOCICLIB [Suspect]
     Active Substance: PALBOCICLIB
     Dosage: 125 MG
     Dates: start: 202111, end: 20220208
  3. PALBOCICLIB [Suspect]
     Active Substance: PALBOCICLIB
     Dosage: 100 MG, 1X/DAY
     Route: 048
  4. PALBOCICLIB [Suspect]
     Active Substance: PALBOCICLIB
     Dosage: 100 MG
     Dates: start: 202202
  5. PALBOCICLIB [Suspect]
     Active Substance: PALBOCICLIB
     Dosage: 100 MG, 1X/DAY
     Route: 048
     Dates: start: 20220217
  6. LETROZOLE [Concomitant]
     Active Substance: LETROZOLE
     Dosage: UNK
     Dates: start: 20210821
  7. ZOLEDRONIC ACID [Concomitant]
     Active Substance: ZOLEDRONIC ACID
     Dosage: UNK
     Dates: start: 20210821
  8. ZUVITROZ [Concomitant]
     Dosage: UNK
  9. DURANZO [Concomitant]
     Indication: Pain
     Dosage: 1 DF

REACTIONS (16)
  - COVID-19 [Unknown]
  - Cerebrovascular accident [Unknown]
  - Paralysis [Unknown]
  - Nerve block [Unknown]
  - Chest pain [Unknown]
  - Diarrhoea [Recovered/Resolved]
  - Full blood count abnormal [Unknown]
  - Motor dysfunction [Unknown]
  - Sensory disturbance [Unknown]
  - Back pain [Unknown]
  - Arthralgia [Unknown]
  - Haemoglobin decreased [Unknown]
  - White blood cell count decreased [Unknown]
  - Heart rate increased [Unknown]
  - Lethargy [Unknown]
  - Blood creatinine increased [Unknown]

NARRATIVE: CASE EVENT DATE: 20211108
